FAERS Safety Report 12663431 (Version 1)
Quarter: 2016Q3

REPORT INFORMATION
  Report Type: Spontaneous
  Country: CN (occurrence: CN)
  Receive Date: 20160818
  Receipt Date: 20160818
  Transmission Date: 20161109
  Serious: Yes (Hospitalization)
  Sender: FDA-Public Use
  Company Number: CN-ASTELLAS-2016JP013663

PATIENT
  Age: 49 Year
  Sex: Female

DRUGS (7)
  1. TACROLIMUS. [Interacting]
     Active Substance: TACROLIMUS
     Dosage: UNK, UNKNOWN FREQ.
     Route: 048
  2. PREDNISONE ACETATE [Interacting]
     Active Substance: PREDNISONE ACETATE
     Route: 048
  3. TACROLIMUS. [Interacting]
     Active Substance: TACROLIMUS
     Dosage: UNK, UNKNOWN FREQ.
     Route: 065
     Dates: end: 201507
  4. TACROLIMUS. [Interacting]
     Active Substance: TACROLIMUS
     Dosage: 1-4MG, TWICE DAILY
     Route: 048
  5. TACROLIMUS. [Suspect]
     Active Substance: TACROLIMUS
     Indication: TRANSPLANT REJECTION
     Route: 048
     Dates: start: 20140619
  6. PREDNISONE ACETATE [Interacting]
     Active Substance: PREDNISONE ACETATE
     Indication: TRANSPLANT REJECTION
     Route: 048
     Dates: start: 20140619
  7. TACROLIMUS. [Interacting]
     Active Substance: TACROLIMUS
     Route: 048

REACTIONS (3)
  - Off label use [Unknown]
  - Thrombophlebitis [Recovered/Resolved]
  - Drug interaction [Unknown]
